FAERS Safety Report 13068249 (Version 3)
Quarter: 2017Q1

REPORT INFORMATION
  Report Type: Report from Study
  Country: CA (occurrence: CA)
  Receive Date: 20161228
  Receipt Date: 20170208
  Transmission Date: 20170428
  Serious: Yes (Other)
  Sender: FDA-Public Use
  Company Number: CA-JNJFOC-20161024697

PATIENT
  Sex: Male

DRUGS (1)
  1. IMBRUVICA [Suspect]
     Active Substance: IBRUTINIB
     Indication: WALDENSTROM^S MACROGLOBULINAEMIA
     Route: 048
     Dates: start: 20161001, end: 20161222

REACTIONS (11)
  - Scleral haemorrhage [Unknown]
  - Platelet count decreased [Not Recovered/Not Resolved]
  - Nausea [Recovering/Resolving]
  - Epistaxis [Recovered/Resolved]
  - Drug ineffective [Unknown]
  - Decreased appetite [Not Recovered/Not Resolved]
  - Eye pain [Not Recovered/Not Resolved]
  - Fatigue [Not Recovered/Not Resolved]
  - Vomiting [Recovering/Resolving]
  - Arthralgia [Not Recovered/Not Resolved]
  - Diarrhoea [Recovering/Resolving]
